FAERS Safety Report 24649581 (Version 2)
Quarter: 2025Q3

REPORT INFORMATION
  Report Type: Spontaneous
  Country: EU (occurrence: EU)
  Receive Date: 20241121
  Receipt Date: 20250810
  Transmission Date: 20251020
  Serious: Yes (Hospitalization, Other)
  Sender: ALEXION PHARMACEUTICALS
  Company Number: EU-AstraZeneca-CH-00748780A

PATIENT
  Sex: Female

DRUGS (1)
  1. SAPHNELO [Suspect]
     Active Substance: ANIFROLUMAB-FNIA
     Dosage: 300 MILLIGRAM, Q4W

REACTIONS (1)
  - Lupus nephritis [Recovering/Resolving]
